FAERS Safety Report 9185990 (Version 1)
Quarter: 2013Q1

REPORT INFORMATION
  Report Type: Spontaneous
  Country: IT (occurrence: IT)
  Receive Date: 20130325
  Receipt Date: 20130325
  Transmission Date: 20140127
  Serious: Yes (Other)
  Sender: FDA-Public Use
  Company Number: IT-MYLANLABS-2013S1005832

PATIENT
  Age: 49 Year
  Sex: Male
  Weight: 65 kg

DRUGS (1)
  1. BISOPROLOL [Suspect]
     Indication: ARRHYTHMIA
     Route: 048
     Dates: start: 20110101

REACTIONS (2)
  - Blood pressure decreased [Recovering/Resolving]
  - Sluggishness [Recovering/Resolving]
